FAERS Safety Report 6795220-5 (Version None)
Quarter: 2010Q2

REPORT INFORMATION
  Report Type: 
  Country: None (occurrence: None)
  Receive Date: 20100625
  Receipt Date: 20100622
  Transmission Date: 20101027
  Serious: Yes (Life-Threatening, Hospitalization)
  Sender: FDA-Public Use
  Company Number: SE-ASTRAZENECA-2010SE25584

PATIENT
  Age: 28152 Day
  Sex: Female
  Weight: 70 kg

DRUGS (6)
  1. NEXIUM [Suspect]
     Indication: GASTRIC ULCER
     Dosage: 1X2.
     Route: 048
     Dates: start: 20100521, end: 20100521
  2. AMOXICILLIN [Suspect]
     Indication: GASTRIC ULCER
     Dosage: 1X2.
     Route: 048
     Dates: start: 20100521, end: 20100521
  3. CLARITHROMYCIN [Suspect]
     Indication: GASTRIC ULCER
     Dosage: 1X2.
     Route: 048
     Dates: start: 20100521, end: 20100521
  4. METFORMIN HCL [Concomitant]
     Indication: DIABETES MELLITUS
     Dosage: 500, 1X1.
  5. INSULATARD [Concomitant]
  6. NIFEREX [Concomitant]
     Dosage: 100, 1X2.

REACTIONS (9)
  - BURNING SENSATION [None]
  - DEEP VEIN THROMBOSIS [None]
  - DYSPNOEA [None]
  - ERYTHEMA [None]
  - HEART RATE DECREASED [None]
  - HYPOAESTHESIA [None]
  - PARAESTHESIA [None]
  - PRURITUS [None]
  - VOMITING [None]
